FAERS Safety Report 7306401-6 (Version None)
Quarter: 2011Q1

REPORT INFORMATION
  Report Type: 
  Country: None (occurrence: None)
  Receive Date: 20110222
  Receipt Date: 20110118
  Transmission Date: 20110831
  Serious: Yes (Hospitalization, Other)
  Sender: FDA-Public Use
  Company Number: BR-GENZYME-THYM-1002270

PATIENT
  Age: 10 Year
  Sex: Female
  Weight: 36 kg

DRUGS (4)
  1. THYMOGLOBULIN [Suspect]
     Indication: APLASTIC ANAEMIA
     Dosage: 2.5 MG/KG, QD
     Route: 042
  2. CICLOSPORIN [Concomitant]
     Indication: APLASTIC ANAEMIA
     Dosage: 400 MG/DAY, UNK
     Route: 048
  3. CALCIUM CARBONATE [Concomitant]
     Indication: APLASTIC ANAEMIA
     Dosage: 600 MG/DAY, UNK
  4. PREDNISOLONE [Concomitant]
     Indication: APLASTIC ANAEMIA
     Dosage: 35 MG/DAY, UNK

REACTIONS (4)
  - SERUM SICKNESS [None]
  - DRUG SPECIFIC ANTIBODY PRESENT [None]
  - RENAL FAILURE ACUTE [None]
  - THERAPEUTIC RESPONSE DECREASED [None]
